FAERS Safety Report 6894036-9 (Version None)
Quarter: 2010Q3

REPORT INFORMATION
  Report Type: 
  Country: None (occurrence: None)
  Receive Date: 20100802
  Receipt Date: 20100720
  Transmission Date: 20110219
  Serious: Yes (Hospitalization)
  Sender: FDA-Public Use
  Company Number: FR-JNJFOC-20100505253

PATIENT
  Sex: Male
  Weight: 73 kg

DRUGS (12)
  1. IBUPROFEN [Suspect]
     Indication: EAR PAIN
  2. ASPIRIN [Suspect]
     Indication: HEADACHE
  3. CELSENTRI [Concomitant]
     Indication: HIV INFECTION
  4. VIREAD [Concomitant]
     Indication: HEPATITIS B
  5. VIREAD [Concomitant]
     Indication: HIV INFECTION
  6. EPIVIR [Concomitant]
     Indication: HEPATITIS B
  7. EPIVIR [Concomitant]
     Indication: HIV INFECTION
  8. TELZIR [Concomitant]
     Indication: HEPATITIS B
  9. TELZIR [Concomitant]
     Indication: HIV INFECTION
  10. NORVIR [Concomitant]
     Indication: HIV INFECTION
  11. BACTRIM [Concomitant]
     Indication: ANTIFUNGAL PROPHYLAXIS
  12. ZOVIRAX [Concomitant]
     Indication: HERPES VIRUS INFECTION

REACTIONS (4)
  - ANAEMIA [None]
  - ASCITES [None]
  - SINUSITIS [None]
  - VARICES OESOPHAGEAL [None]
